FAERS Safety Report 13082963 (Version 2)
Quarter: 2017Q2

REPORT INFORMATION
  Report Type: Spontaneous
  Country: US (occurrence: US)
  Receive Date: 20170103
  Receipt Date: 20170508
  Transmission Date: 20170830
  Serious: Yes (Death, Other)
  Sender: FDA-Public Use
  Company Number: US-BRISTOL-MYERS SQUIBB COMPANY-BMS-2016-111857

PATIENT
  Sex: Female

DRUGS (2)
  1. OPDIVO [Suspect]
     Active Substance: NIVOLUMAB
     Indication: THYROID CANCER
     Dosage: UNK
     Route: 065
     Dates: start: 20160422
  2. YERVOY [Suspect]
     Active Substance: IPILIMUMAB
     Indication: THYROID CANCER
     Dosage: UNK
     Route: 065
     Dates: start: 20160422

REACTIONS (2)
  - Death [Fatal]
  - Product use in unapproved indication [Unknown]
